FAERS Safety Report 8563813-0 (Version None)
Quarter: 2012Q3

REPORT INFORMATION
  Report Type: 
  Country: None (occurrence: None)
  Receive Date: 20120727
  Receipt Date: 20120727
  Transmission Date: 20120928
  Serious: Yes (Hospitalization)
  Sender: FDA-Public Use
  Company Number: None

PATIENT
  Sex: Female
  Weight: 65.3 kg

DRUGS (2)
  1. VANCOMYCIN [Suspect]
     Indication: PNEUMONIA
     Dosage: 1000 MG IN 250 ML, D5W
     Dates: start: 20120709, end: 20120709
  2. VANCOMYCIN [Suspect]
     Indication: ASPIRATION
     Dosage: 1000 MG IN 250 ML, D5W
     Dates: start: 20120709, end: 20120709

REACTIONS (3)
  - AGITATION [None]
  - MENTAL STATUS CHANGES [None]
  - CONFUSIONAL STATE [None]
